FAERS Safety Report 25663760 (Version 1)
Quarter: 2025Q3

REPORT INFORMATION
  Report Type: Spontaneous
  Country: CH (occurrence: CH)
  Receive Date: 20250811
  Receipt Date: 20250811
  Transmission Date: 20251020
  Serious: Yes (Life-Threatening, Hospitalization, Other)
  Sender: NOVO NORDISK
  Company Number: None

PATIENT
  Age: 56 Year
  Sex: Male
  Weight: 150 kg

DRUGS (14)
  1. CHOLECALCIFEROL [Concomitant]
     Active Substance: CHOLECALCIFEROL
     Dosage: 10000 IU, QW
     Route: 048
     Dates: start: 2014, end: 20250710
  2. ALDACTONE [Concomitant]
     Active Substance: SPIRONOLACTONE
     Dosage: 25 MG, QD
     Route: 048
     Dates: start: 20250317, end: 20250710
  3. VITAMIN C BURGERSTEIN [Concomitant]
     Dosage: 1000 MG, QD
     Route: 048
     Dates: start: 20241007, end: 20250710
  4. RYBELSUS [Concomitant]
     Active Substance: SEMAGLUTIDE
     Dosage: 28 MG, QD
     Route: 048
     Dates: end: 20250623
  5. CALCIUM\CHOLECALCIFEROL [Concomitant]
     Active Substance: CALCIUM\CHOLECALCIFEROL
     Route: 048
     Dates: end: 20250710
  6. EZETIMIBE [Concomitant]
     Active Substance: EZETIMIBE
     Dosage: 10 MG, QD
     Route: 048
     Dates: start: 20241007, end: 20250710
  7. BURGERSTEIN SELENVITAL [Concomitant]
     Dosage: 110 ?G, QD
     Route: 048
     Dates: start: 20141007, end: 20250710
  8. BURGERSTEIN ZINKVITAL [Concomitant]
     Dosage: 60 MG, QD
     Route: 048
     Dates: start: 20140708, end: 20250710
  9. OZEMPIC [Suspect]
     Active Substance: SEMAGLUTIDE
     Indication: Product used for unknown indication
     Dosage: 1 MG, QW
     Route: 058
     Dates: start: 2024, end: 20250710
  10. FISH OIL [Concomitant]
     Active Substance: FISH OIL
     Dosage: 1 G, QD
     Route: 048
     Dates: start: 2014, end: 20250710
  11. OLMESARTAN/AMLODIPIN/HCT MYLAN [Concomitant]
     Route: 048
     Dates: start: 20240308, end: 20250710
  12. EMPAGLIFLOZIN\METFORMIN HYDROCHLORIDE [Concomitant]
     Active Substance: EMPAGLIFLOZIN\METFORMIN HYDROCHLORIDE
     Route: 048
     Dates: end: 20250623
  13. XIGDUO XR [Suspect]
     Active Substance: DAPAGLIFLOZIN PROPANEDIOL\METFORMIN HYDROCHLORIDE
     Indication: Product used for unknown indication
     Route: 048
     Dates: start: 20250623, end: 20250710
  14. ATORVASTATIN [Concomitant]
     Active Substance: ATORVASTATIN
     Dosage: 10 MG, QD
     Route: 048
     Dates: start: 20240611, end: 20250710

REACTIONS (3)
  - Pulmonary embolism [Not Recovered/Not Resolved]
  - Metabolic acidosis [Unknown]
  - Obstructive shock [Unknown]

NARRATIVE: CASE EVENT DATE: 20250705
